FAERS Safety Report 25573056 (Version 1)
Quarter: 2025Q3

REPORT INFORMATION
  Report Type: Spontaneous
  Country: US (occurrence: US)
  Receive Date: 20250717
  Receipt Date: 20250717
  Transmission Date: 20251020
  Serious: No
  Sender: SANOFI AVENTIS
  Company Number: US-SA-2025SA201721

PATIENT
  Age: 57 Year
  Sex: Female
  Weight: 58.18 kg

DRUGS (5)
  1. DUPIXENT [Suspect]
     Active Substance: DUPILUMAB
     Dosage: 300 MG, QOW
     Route: 058
  2. HYDROXYZINE [Concomitant]
     Active Substance: HYDROXYZINE HYDROCHLORIDE
  3. EPINEPHRINE [Concomitant]
     Active Substance: EPINEPHRINE
  4. PREDNISONE [Concomitant]
     Active Substance: PREDNISONE
  5. ESTRADIOL [Concomitant]
     Active Substance: ESTRADIOL

REACTIONS (1)
  - Urinary tract infection [Unknown]

NARRATIVE: CASE EVENT DATE: 20250601
